FAERS Safety Report 9888904 (Version 3)
Quarter: 2014Q1

REPORT INFORMATION
  Report Type: Spontaneous
  Country: JP (occurrence: JP)
  Receive Date: 20140211
  Receipt Date: 20140327
  Transmission Date: 20141002
  Serious: Yes (Death)
  Sender: FDA-Public Use
  Company Number: JP-NAPPMUNDI-GBR-2014-0017007

PATIENT
  Age: 71 Year
  Sex: Male

DRUGS (8)
  1. OXYCODONE HCL PR TABLET 10 MG [Suspect]
     Indication: CANCER PAIN
     Dosage: 20 MG, BID
     Route: 048
     Dates: start: 20140113, end: 20140120
  2. OXYCODONE HCL PR TABLET 10 MG [Suspect]
     Dosage: 10 MG, BID
     Route: 048
     Dates: start: 20140110, end: 20140112
  3. OXYCODONE HCL IR POWDER 0.5% [Suspect]
     Indication: CANCER PAIN
     Dosage: 10 MG, PRN
     Route: 048
     Dates: start: 20140117, end: 20140120
  4. OXYCODONE HCL IR POWDER 0.5% [Suspect]
     Dosage: 5 MG, PRN
     Route: 048
     Dates: start: 20140110, end: 20140116
  5. PRIMPERAN [Suspect]
     Indication: HICCUPS
     Dosage: 5 MG, PRN (1 TO 3 TIMES DAILY)
     Route: 048
     Dates: start: 20140114, end: 20140120
  6. AVELOX [Suspect]
     Indication: PLEURISY
     Dosage: 400 MG, DAILY
     Route: 048
     Dates: start: 20140107, end: 20140109
  7. GENINAX [Suspect]
     Indication: PLEURISY
     Dosage: 400 MG, DAILY
     Route: 048
     Dates: start: 20140110, end: 20140113
  8. MEROPEN /01250501/ [Suspect]
     Indication: PLEURISY
     Dosage: 3 G, DAILY
     Route: 042
     Dates: start: 20140114, end: 20140123

REACTIONS (1)
  - Interstitial lung disease [Fatal]
